FAERS Safety Report 6051826-2 (Version None)
Quarter: 2009Q1

REPORT INFORMATION
  Report Type: 
  Country: None (occurrence: None)
  Receive Date: 20090126
  Receipt Date: 20090119
  Transmission Date: 20090719
  Serious: Yes (Death, Hospitalization, Other)
  Sender: FDA-Public Use
  Company Number: US-CELGENEUS-163-21880-08111378

PATIENT
  Sex: Male

DRUGS (3)
  1. REVLIMID [Suspect]
     Indication: MULTIPLE MYELOMA
     Route: 048
     Dates: start: 20080801
  2. WARFARIN [Concomitant]
     Route: 065
     Dates: start: 20080106, end: 20081020
  3. WARFARIN [Concomitant]
     Route: 065
     Dates: start: 20081020, end: 20081113

REACTIONS (2)
  - HIP FRACTURE [None]
  - MULTIPLE MYELOMA [None]
